FAERS Safety Report 8154250 (Version 3)
Quarter: 2015Q1

REPORT INFORMATION
  Report Type: Report from Study
  Country: BR (occurrence: BR)
  Receive Date: 20110923
  Receipt Date: 20150102
  Transmission Date: 20150721
  Serious: Yes (Hospitalization)
  Sender: FDA-Public Use
  Company Number: BR-ROCHE-803192

PATIENT
  Age: 78 Year
  Sex: Male
  Weight: 52.5 kg

DRUGS (3)
  1. PLACEBO [Suspect]
     Active Substance: UNSPECIFIED INGREDIENT
     Indication: GASTRIC CANCER
     Dosage: FREQUENCY : D1, FORM : INFUSION
     Route: 042
     Dates: start: 20081205
  2. CAPECITABINE. [Suspect]
     Active Substance: CAPECITABINE
     Indication: GASTRIC CANCER
     Dosage: FREQUENCY : D1-14,LAST DOSE PRIOR TO SAE: 07 SEPTEMBER 2011
     Route: 048
     Dates: start: 20081205, end: 20110913
  3. CISPLATIN. [Suspect]
     Active Substance: CISPLATIN
     Indication: GASTRIC CANCER
     Dosage: FORM : INFUSION, FREQUENCY: D1
     Route: 042

REACTIONS (1)
  - Hyperkalaemia [Recovered/Resolved]

NARRATIVE: CASE EVENT DATE: 20110913
